FAERS Safety Report 25804191 (Version 1)
Quarter: 2025Q3

REPORT INFORMATION
  Report Type: Spontaneous
  Country: EG (occurrence: EG)
  Receive Date: 20250915
  Receipt Date: 20250915
  Transmission Date: 20251020
  Serious: Yes (Hospitalization, Other)
  Sender: NOVO NORDISK
  Company Number: EG-NOVOPROD-1513949

PATIENT
  Age: 668 Month
  Sex: Female

DRUGS (5)
  1. METHYLCOBALAMIN [Concomitant]
     Active Substance: METHYLCOBALAMIN
     Indication: Vitamin supplementation
     Route: 048
  2. NOVORAPID [Suspect]
     Active Substance: INSULIN ASPART
     Indication: Diabetes mellitus
     Dosage: 30 IU, QD (8U BEFORE BREAKFAST /12U BEFORE LUNCH/10U BEFORE DINNER)
     Route: 058
  3. CHOLEROSE PLUS [Concomitant]
     Indication: Hypercholesterolaemia
     Route: 048
  4. TRESIBA [Suspect]
     Active Substance: INSULIN DEGLUDEC
     Indication: Diabetes mellitus
     Route: 058
  5. DIMRA [Concomitant]
     Indication: Antiinflammatory therapy

REACTIONS (5)
  - Osteoarthritis [Not Recovered/Not Resolved]
  - Intervertebral disc protrusion [Not Recovered/Not Resolved]
  - Procedural pain [Not Recovered/Not Resolved]
  - Hyperglycaemia [Unknown]
  - Inflammation [Unknown]
